FAERS Safety Report 7884639-7 (Version None)
Quarter: 2011Q4

REPORT INFORMATION
  Report Type: 
  Country: None (occurrence: None)
  Receive Date: 20111102
  Receipt Date: 20111024
  Transmission Date: 20120403
  Serious: Yes (Other)
  Sender: FDA-Public Use
  Company Number: US-MERCK-1108USA01582

PATIENT
  Age: 68 Year
  Sex: Female
  Weight: 55 kg

DRUGS (3)
  1. [THERAPY UNSPECIFIED] [Concomitant]
     Indication: HYPERCHOLESTEROLAEMIA
     Route: 048
  2. FOSAMAX [Suspect]
     Indication: OSTEOPOROSIS
     Route: 048
     Dates: start: 20050101, end: 20090101
  3. [THERAPY UNSPECIFIED] [Concomitant]
     Indication: HYPERTENSION
     Route: 048

REACTIONS (22)
  - ACROCHORDON [None]
  - DEPRESSION [None]
  - INFECTION [None]
  - OSTEOARTHRITIS [None]
  - DENTAL CARIES [None]
  - ARTHRALGIA [None]
  - ARTHROPATHY [None]
  - VAGINITIS BACTERIAL [None]
  - FISTULA DISCHARGE [None]
  - OSTEONECROSIS OF JAW [None]
  - STRESS [None]
  - ANXIETY [None]
  - PHLEBITIS SUPERFICIAL [None]
  - TOOTH ABSCESS [None]
  - CATHETER SITE INFECTION [None]
  - TOOTH DISORDER [None]
  - ACTINOMYCOSIS [None]
  - ARTHRITIS [None]
  - OSTEOMYELITIS [None]
  - VULVOVAGINAL PRURITUS [None]
  - CERUMEN IMPACTION [None]
  - DEEP VEIN THROMBOSIS [None]
